FAERS Safety Report 7548084-6 (Version None)
Quarter: 2011Q2

REPORT INFORMATION
  Report Type: 
  Country: None (occurrence: None)
  Receive Date: 20110615
  Receipt Date: 20090316
  Transmission Date: 20111010
  Serious: Yes (Other)
  Sender: FDA-Public Use
  Company Number: US-BAYER-200915580NA

PATIENT
  Age: 72 Year
  Sex: Male
  Weight: 90.703 kg

DRUGS (11)
  1. ACETYLSALICYLIC ACID SRT [Concomitant]
     Indication: ANTICOAGULANT THERAPY
     Dosage: 325 MG, QD
     Route: 048
  2. LIPITOR [Concomitant]
     Indication: BLOOD CHOLESTEROL INCREASED
     Dosage: 10 MG, QD
     Route: 048
  3. MANNITOL [Concomitant]
     Dosage: 50 CC
     Route: 042
     Dates: start: 20020121, end: 20020121
  4. LASIX [Concomitant]
     Dosage: 10CC
     Route: 042
     Dates: start: 20020121, end: 20020121
  5. VERSED [Concomitant]
     Dosage: 2 MG, UNK
     Route: 042
     Dates: start: 20020121, end: 20020121
  6. TRASYLOL [Suspect]
     Indication: CORONARY ARTERY BYPASS
     Dosage: 200 ML CARDIOPULMONARY BYPASS PRIME
     Route: 042
     Dates: start: 20020121, end: 20020121
  7. DOPAMINE HCL [Concomitant]
  8. TOPROL-XL [Concomitant]
     Dosage: 100 MG, QD
     Route: 048
     Dates: start: 20010323
  9. HEPARIN [Concomitant]
     Dosage: 45,000 UNITS
     Route: 042
     Dates: start: 20020121, end: 20020121
  10. LIDOCAINE [Concomitant]
     Dosage: 5 CC
     Route: 042
     Dates: start: 20020121, end: 20020121
  11. BUMEX [Concomitant]
     Dosage: 4 MG AM,2 MG PM
     Route: 048
     Dates: start: 20010323

REACTIONS (9)
  - ANHEDONIA [None]
  - RENAL FAILURE [None]
  - ANXIETY [None]
  - UNEVALUABLE EVENT [None]
  - PAIN [None]
  - FEAR [None]
  - DEPRESSION [None]
  - INJURY [None]
  - ADVERSE EVENT [None]
